FAERS Safety Report 24894822 (Version 1)
Quarter: 2025Q1

REPORT INFORMATION
  Report Type: Spontaneous
  Country: FR (occurrence: FR)
  Receive Date: 20250128
  Receipt Date: 20250128
  Transmission Date: 20250409
  Serious: Yes (Hospitalization)
  Sender: SANDOZ
  Company Number: None

PATIENT
  Age: 88 Year
  Sex: Male
  Weight: 67.8 kg

DRUGS (5)
  1. AZITHROMYCIN [Suspect]
     Active Substance: AZITHROMYCIN
     Indication: Bacterial endophthalmitis
     Dosage: 250.000MG QD
     Route: 048
     Dates: start: 20241226, end: 20241231
  2. LEVOFLOXACIN [Suspect]
     Active Substance: LEVOFLOXACIN
     Indication: Bacterial endophthalmitis
     Dosage: 500.000MG QD
     Route: 048
     Dates: start: 20241225, end: 20250106
  3. TROPICAMIDE [Suspect]
     Active Substance: TROPICAMIDE
     Indication: Bacterial endophthalmitis
     Dosage: 4.000DROP (1/12 MILLILITRE) QD
     Route: 047
     Dates: start: 20241226, end: 20250106
  4. PYRIMETHAMINE [Suspect]
     Active Substance: PYRIMETHAMINE
     Indication: Bacterial endophthalmitis
     Dosage: 50.000MG QD
     Route: 048
     Dates: start: 20241226, end: 20241231
  5. CILASTATIN SODIUM\IMIPENEM [Suspect]
     Active Substance: CILASTATIN SODIUM\IMIPENEM
     Indication: Bacterial endophthalmitis
     Dosage: 1000.000MG QID
     Route: 042
     Dates: start: 20241224, end: 20250106

REACTIONS (1)
  - Myoclonus [Recovered/Resolved]

NARRATIVE: CASE EVENT DATE: 20241230
